FAERS Safety Report 14108048 (Version 2)
Quarter: 2017Q4

REPORT INFORMATION
  Report Type: Spontaneous
  Country: KR (occurrence: KR)
  Receive Date: 20171019
  Receipt Date: 20171107
  Transmission Date: 20180321
  Serious: Yes (Hospitalization, Other)
  Sender: FDA-Public Use
  Company Number: KR-009507513-1710KOR007165

PATIENT
  Age: 65 Year
  Sex: Male
  Weight: 70.4 kg

DRUGS (6)
  1. NOXAFIL [Suspect]
     Active Substance: POSACONAZOLE
     Dosage: 300 MG, ONCE A DAY
     Dates: start: 20170813, end: 20170902
  2. DAUNOCIN [Concomitant]
     Active Substance: DAUNORUBICIN HYDROCHLORIDE
     Indication: ACUTE MYELOID LEUKAEMIA
     Dosage: 104.4 MG, ONCE DAILY
     Route: 042
     Dates: start: 20170809, end: 20170811
  3. ISONIAZID (+) RIFAMPIN [Concomitant]
     Indication: LYMPHADENITIS
     Dosage: 2 TABLETS, ONCE DAILY
     Route: 048
     Dates: start: 20170515, end: 20170915
  4. PYRIDOXINE [Concomitant]
     Active Substance: PYRIDOXINE
     Indication: LYMPHADENITIS
     Dosage: 50 MG, QD (ONCE DAILY)
     Dates: start: 20170316, end: 20170915
  5. NOXAFIL [Suspect]
     Active Substance: POSACONAZOLE
     Indication: ANTIFUNGAL PROPHYLAXIS
     Dosage: 300 MG, TWICE A DAY
     Route: 048
     Dates: start: 20170812, end: 20170812
  6. CYTARABINE. [Concomitant]
     Active Substance: CYTARABINE
     Indication: ACUTE MYELOID LEUKAEMIA
     Dosage: 174 MG, QD
     Route: 042
     Dates: start: 20170809, end: 20170815

REACTIONS (11)
  - Arterial haemorrhage [Recovered/Resolved]
  - Conjunctival haemorrhage [Recovered/Resolved]
  - Vomiting [Recovered/Resolved]
  - Pollakiuria [Recovered/Resolved]
  - Headache [Recovered/Resolved]
  - Mouth haemorrhage [Recovered/Resolved]
  - Varicella zoster virus infection [Recovered/Resolved]
  - Cardiac failure [Recovered/Resolved]
  - Acute myocardial infarction [Recovered/Resolved]
  - Febrile neutropenia [Recovered/Resolved]
  - Febrile neutropenia [Recovered/Resolved]

NARRATIVE: CASE EVENT DATE: 20170813
